FAERS Safety Report 24979934 (Version 1)
Quarter: 2025Q1

REPORT INFORMATION
  Report Type: Spontaneous
  Country: US (occurrence: US)
  Receive Date: 20250218
  Receipt Date: 20250218
  Transmission Date: 20250409
  Serious: Yes (Other)
  Sender: CATALYST PHARMA
  Company Number: US-CATALYSTPHARMACEUTICALPARTNERS-EC-2018-037957

PATIENT
  Sex: Male

DRUGS (9)
  1. FYCOMPA [Suspect]
     Active Substance: PERAMPANEL
     Indication: Petit mal epilepsy
     Dosage: 2 MILLIGRAM, Q8H DOSE AND FREQUENCY UNKNOWN, THERAPY DURATION- 2 YEARS
     Route: 048
  2. FYCOMPA [Suspect]
     Active Substance: PERAMPANEL
     Indication: Epilepsy
     Dosage: 2 MILLIGRAM, Q12H
     Route: 048
  3. FYCOMPA [Suspect]
     Active Substance: PERAMPANEL
     Indication: Seizure
     Dosage: 2 MILLIGRAM, Q8H
     Route: 048
  4. FYCOMPA [Suspect]
     Active Substance: PERAMPANEL
     Dosage: 2 MILLIGRAM, Q8H, FREQUENCY AND DOSE UNKNOWN (INCONSISTENT)
     Route: 048
  5. FYCOMPA [Suspect]
     Active Substance: PERAMPANEL
     Route: 048
  6. FYCOMPA [Suspect]
     Active Substance: PERAMPANEL
     Route: 048
  7. FYCOMPA [Suspect]
     Active Substance: PERAMPANEL
     Dosage: 2MG TABLET - TAKE 5 TABLETS BY MOUTH (10MG TOTAL) EVERY DAY
     Route: 048
  8. KEPPRA [Concomitant]
     Active Substance: LEVETIRACETAM
     Indication: Product used for unknown indication
     Route: 065
  9. VIMPAT [Concomitant]
     Active Substance: LACOSAMIDE
     Indication: Product used for unknown indication
     Route: 065

REACTIONS (13)
  - Seizure [Recovering/Resolving]
  - Wound [Unknown]
  - Sciatica [Unknown]
  - Dysarthria [Unknown]
  - Cognitive disorder [Unknown]
  - Product administration error [Unknown]
  - Intentional dose omission [Unknown]
  - Illness [Unknown]
  - Malaise [Unknown]
  - Head injury [Unknown]
  - Fall [Unknown]
  - Contusion [Unknown]
  - Vomiting [Unknown]

NARRATIVE: CASE EVENT DATE: 20180101
